FAERS Safety Report 21577333 (Version 1)
Quarter: 2022Q4

REPORT INFORMATION
  Report Type: Spontaneous
  Country: US (occurrence: US)
  Receive Date: 20221110
  Receipt Date: 20221110
  Transmission Date: 20230112
  Serious: No
  Sender: FDA-Public Use
  Company Number: US-ELI_LILLY_AND_COMPANY-US202211004425

PATIENT
  Age: 53 Year
  Sex: Female

DRUGS (1)
  1. MOUNJARO [Suspect]
     Active Substance: TIRZEPATIDE
     Indication: Product used for unknown indication
     Dosage: 10 MG, UNKNOWN
     Route: 058
     Dates: start: 20221103

REACTIONS (5)
  - Retching [Unknown]
  - Abdominal discomfort [Not Recovered/Not Resolved]
  - Vomiting [Unknown]
  - Nausea [Not Recovered/Not Resolved]
  - Inappropriate schedule of product administration [Unknown]

NARRATIVE: CASE EVENT DATE: 20221103
